FAERS Safety Report 7901273-0 (Version None)
Quarter: 2011Q4

REPORT INFORMATION
  Report Type: 
  Country: None (occurrence: None)
  Receive Date: 20111108
  Receipt Date: 20111031
  Transmission Date: 20120403
  Serious: Yes (Other)
  Sender: FDA-Public Use
  Company Number: PHEH2010US03463

PATIENT
  Sex: Female

DRUGS (41)
  1. OPIUM ^DAK^ [Suspect]
  2. PENTASA [Concomitant]
  3. SPIRIVA [Concomitant]
  4. TRIAMTERENE AND HYDROCHLOROTHIAZIDE [Concomitant]
  5. UNASYN [Concomitant]
     Dosage: 3 G, Q6H
     Route: 042
  6. LOPERAMIDE HCL [Concomitant]
     Dosage: 2 DF, UNK
     Route: 048
  7. ZESTRIL [Concomitant]
  8. ASPIRIN [Concomitant]
     Dosage: 81 MG, UNK
     Route: 048
  9. NEURONTIN [Concomitant]
  10. VICODIN [Concomitant]
  11. TARCEVA [Concomitant]
  12. LIDOCAINE [Concomitant]
     Dosage: 1 DF, Q12H
     Route: 061
  13. BENADRYL HCL [Concomitant]
  14. ZOCOR [Concomitant]
     Dosage: 10 MG, QD
  15. ALBUTEROL [Concomitant]
  16. SIMVASTATIN [Concomitant]
  17. BENADRYL [Concomitant]
     Dosage: 25 MG, Q6H, PRN
     Route: 048
  18. AUGMENTIN [Concomitant]
  19. PROTONIX [Concomitant]
  20. WELLBUTRIN [Concomitant]
  21. COLACE [Concomitant]
     Dosage: 100 MG, BID
     Route: 048
  22. NICOTINE [Concomitant]
     Dosage: 21 MG, QD
  23. AVELOX [Concomitant]
     Dosage: 400 MG, QD
     Route: 042
  24. METHADONE HCL [Concomitant]
     Dosage: 20 MG, TID
  25. MOXIFLOXACIN [Concomitant]
     Dosage: 400 MG, QD
     Route: 042
  26. FLOVENT [Concomitant]
  27. DILAUDID [Concomitant]
  28. ASACOL [Concomitant]
  29. LANTUS [Concomitant]
     Dosage: 70 U, QD
     Route: 058
  30. METFORMIN HCL [Concomitant]
     Dosage: 1000 MG, BID
     Route: 048
  31. NARCAN [Concomitant]
     Dosage: 0.04 MG, UNK
     Route: 042
  32. ATIVAN [Concomitant]
     Dosage: 2 DF, QHS
     Route: 048
  33. ZOMETA [Suspect]
     Indication: OSTEOPENIA
     Dates: start: 20060101
  34. VANCOMYCIN [Concomitant]
  35. DEMEROL [Concomitant]
  36. HUMULIN R [Concomitant]
  37. PERCOCET [Concomitant]
  38. REGLAN [Concomitant]
     Dosage: 5 MG, Q6H
     Route: 048
  39. COMBIVENT [Concomitant]
  40. LISINOPRIL [Concomitant]
     Dosage: 5 MG, BID
     Route: 048
  41. GLUCOPHAGE [Concomitant]
     Dosage: 2 G, QD

REACTIONS (53)
  - DEFORMITY [None]
  - CHRONIC SINUSITIS [None]
  - DEEP VEIN THROMBOSIS [None]
  - SLEEP APNOEA SYNDROME [None]
  - DIZZINESS [None]
  - EXPOSED BONE IN JAW [None]
  - EMOTIONAL DISTRESS [None]
  - QUALITY OF LIFE DECREASED [None]
  - OBSTRUCTIVE AIRWAYS DISORDER [None]
  - COLITIS ULCERATIVE [None]
  - INTERVERTEBRAL DISC DEGENERATION [None]
  - INTERVERTEBRAL DISC SPACE NARROWING [None]
  - DIARRHOEA [None]
  - OSTEITIS [None]
  - PAIN [None]
  - PLEURAL EFFUSION [None]
  - ATELECTASIS [None]
  - PERIODONTITIS [None]
  - HYPERTENSION [None]
  - OSTEONECROSIS OF JAW [None]
  - LYMPHADENOPATHY [None]
  - BONE LOSS [None]
  - CHRONIC OBSTRUCTIVE PULMONARY DISEASE [None]
  - ILEUS [None]
  - DRUG WITHDRAWAL SYNDROME [None]
  - HALLUCINATION [None]
  - OESOPHAGITIS [None]
  - LEUKOCYTOSIS [None]
  - CROHN'S DISEASE [None]
  - ANAEMIA [None]
  - EXOPHTHALMOS [None]
  - MASTICATION DISORDER [None]
  - ANXIETY [None]
  - ACTIVITIES OF DAILY LIVING IMPAIRED [None]
  - LUNG NEOPLASM [None]
  - PURULENT DISCHARGE [None]
  - DIARRHOEA HAEMORRHAGIC [None]
  - GASTROOESOPHAGEAL REFLUX DISEASE [None]
  - VISION BLURRED [None]
  - DIVERTICULITIS [None]
  - TOOTH LOSS [None]
  - INTERVERTEBRAL DISC DISORDER [None]
  - FATIGUE [None]
  - GINGIVITIS [None]
  - ADRENAL DISORDER [None]
  - DUODENITIS [None]
  - TACHYCARDIA [None]
  - MUSCLE STRAIN [None]
  - HEPATIC STEATOSIS [None]
  - CARDIAC FAILURE CONGESTIVE [None]
  - HIATUS HERNIA [None]
  - IMPAIRED GASTRIC EMPTYING [None]
  - STREPTOCOCCAL INFECTION [None]
